FAERS Safety Report 24554484 (Version 11)
Quarter: 2025Q4

REPORT INFORMATION
  Report Type: Spontaneous
  Country: CA (occurrence: CA)
  Receive Date: 20241028
  Receipt Date: 20251216
  Transmission Date: 20260118
  Serious: Yes (Other)
  Sender: CELLTRION
  Company Number: CA-PFIZER INC-202400243911

PATIENT

DRUGS (28)
  1. INFLIXIMAB [Suspect]
     Active Substance: INFLIXIMAB
     Indication: Colitis ulcerative
     Dosage: 1000.0 MILLIGRAM
     Route: 042
  2. INFLIXIMAB [Suspect]
     Active Substance: INFLIXIMAB
     Dosage: 1000.0 MILLIGRAM
     Route: 042
  3. INFLIXIMAB [Suspect]
     Active Substance: INFLIXIMAB
     Dosage: 1000.0 MILLIGRAM
     Route: 042
  4. INFLIXIMAB [Suspect]
     Active Substance: INFLIXIMAB
     Dosage: 5.0 MG/KG
     Route: 042
  5. INFLIXIMAB [Suspect]
     Active Substance: INFLIXIMAB
     Dosage: 505.0 MILLIGRAM
     Route: 042
  6. INFLIXIMAB [Suspect]
     Active Substance: INFLIXIMAB
     Dosage: 520.0 MILLIGRAM
     Route: 042
  7. INFLIXIMAB [Suspect]
     Active Substance: INFLIXIMAB
     Dosage: 510.0 MILLIGRAM
     Route: 042
  8. INFLIXIMAB [Suspect]
     Active Substance: INFLIXIMAB
     Dosage: 5.0 MG/KG
     Route: 042
  9. INFLIXIMAB [Suspect]
     Active Substance: INFLIXIMAB
     Dosage: 5.0 MG/KG
     Route: 042
  10. INFLIXIMAB [Suspect]
     Active Substance: INFLIXIMAB
     Dosage: 5.0 MG/KG
     Route: 042
  11. INFLECTRA [Suspect]
     Active Substance: INFLIXIMAB-DYYB
     Indication: Colitis ulcerative
     Dosage: 5 MG/KG, INDUCTION WEEK 0, 2, 6, THEN EVERY 8 WEEK
     Route: 042
     Dates: start: 20240711
  12. INFLECTRA [Suspect]
     Active Substance: INFLIXIMAB-DYYB
     Dosage: 5 MG/KG, INDUCTION WEEK 0, 2, 6, THEN EVERY 8 WEEK
     Route: 042
     Dates: start: 20240726
  13. INFLECTRA [Suspect]
     Active Substance: INFLIXIMAB-DYYB
     Dosage: 5 MG/KG (505 MG), 4 WEEKS (WEEK 6) INDUCTION WEEK 0, 2, 6 THEN MAINTENANCE EVERY 8 WEEK
     Route: 042
     Dates: start: 20240823
  14. INFLECTRA [Suspect]
     Active Substance: INFLIXIMAB-DYYB
     Dosage: 510 MG,(5MG/KG), AFTER 8 WEEKS (EVERY MONTH FOR 3 DOSES, THEN EVERY 8 WEEKS)
     Route: 042
     Dates: start: 20241018, end: 20241018
  15. INFLECTRA [Suspect]
     Active Substance: INFLIXIMAB-DYYB
     Dosage: 520 MG, WEEK 2 OF REINDUCTION (5 MG/KG, WEEK 2 AND 6, THEN EVERY 8 WEEKS)
     Route: 042
     Dates: start: 20241029
  16. INFLECTRA [Suspect]
     Active Substance: INFLIXIMAB-DYYB
     Dosage: 505 MG, 4 WEEKS (5 MG/KG, WEEK 2 AND 6, THEN EVERY 8 WEEKS)
     Route: 042
     Dates: start: 20241127
  17. INFLECTRA [Suspect]
     Active Substance: INFLIXIMAB-DYYB
     Dosage: 5 MG/KG, WEEK 2 AND 6, THEN EVERY 8 WEEKS
     Route: 042
     Dates: start: 20250123
  18. INFLECTRA [Suspect]
     Active Substance: INFLIXIMAB-DYYB
     Dosage: 1000 MG, WEEK 0 REINDUCTION (REINDUCTION WEEK 0, 2, 6 THEN EVERY 8 WEEK)
     Route: 042
     Dates: start: 20250320
  19. INFLECTRA [Suspect]
     Active Substance: INFLIXIMAB-DYYB
     Dosage: 1000 MG, AFTER 2 WEEKS (WEEK 2) (REINDUCTION WEEK 0, 2, 6 THEN EVERY 8 WEEK)
     Route: 042
     Dates: start: 20250403
  20. INFLECTRA [Suspect]
     Active Substance: INFLIXIMAB-DYYB
     Dosage: 1000 MG, 4 WEEKS (W6) (1000 MG, REINDUCTION WEEK 0, 2, 6 THEN EVERY 8 WEEK)
     Route: 042
     Dates: start: 20250501
  21. CALCIUM [Concomitant]
     Active Substance: CALCIUM
     Dosage: 1 DF
  22. CONCERTA [Concomitant]
     Active Substance: METHYLPHENIDATE HYDROCHLORIDE
     Dosage: 1 DF
  23. FASENRA [Concomitant]
     Active Substance: BENRALIZUMAB
     Indication: Asthma
     Dosage: UNK
  24. FLUOXETINE [Concomitant]
     Active Substance: FLUOXETINE HYDROCHLORIDE
     Dosage: 1 DF
  25. PANTOPRAZOLE [Concomitant]
     Active Substance: PANTOPRAZOLE
     Dosage: 1 DF
  26. CETIRIZINE HYDROCHLORIDE [Concomitant]
     Active Substance: CETIRIZINE HYDROCHLORIDE
     Indication: Asthma
     Dosage: UNK
  27. CHOLECALCIFEROL [Concomitant]
     Active Substance: CHOLECALCIFEROL
     Dosage: 1 DF
  28. BENRALIZUMAB [Concomitant]
     Active Substance: BENRALIZUMAB
     Indication: Asthma

REACTIONS (10)
  - Condition aggravated [Recovering/Resolving]
  - Flatulence [Recovering/Resolving]
  - Abdominal distension [Recovering/Resolving]
  - Drug specific antibody present [Recovering/Resolving]
  - Fatigue [Recovering/Resolving]
  - Therapeutic product effect decreased [Recovering/Resolving]
  - Off label use [Recovering/Resolving]
  - Off label use [Recovering/Resolving]
  - Intentional product use issue [Recovering/Resolving]
  - Overdose [Unknown]

NARRATIVE: CASE EVENT DATE: 20240101
